FAERS Safety Report 15704685 (Version 1)
Quarter: 2018Q4

REPORT INFORMATION
  Report Type: Report from Study
  Country: CA (occurrence: CA)
  Receive Date: 20181210
  Receipt Date: 20181210
  Transmission Date: 20190205
  Serious: Yes (Hospitalization)
  Sender: FDA-Public Use
  Company Number: CA-SA-2018SA326785

PATIENT
  Age: 85 Year
  Sex: Female

DRUGS (5)
  1. OCTREOTIDE. [Suspect]
     Active Substance: OCTREOTIDE
     Indication: CARCINOID TUMOUR
     Dosage: 20 MG, Q3W
     Route: 030
  2. APIXABAN [Concomitant]
     Active Substance: APIXABAN
     Indication: CARDIAC DISORDER
     Dosage: UNK
  3. IRBESARTAN. [Suspect]
     Active Substance: IRBESARTAN
     Dosage: UNK
  4. BISOPROLOL [Concomitant]
     Active Substance: BISOPROLOL
     Indication: CARDIAC DISORDER
     Dosage: UNK
  5. HYDROCHLOROTHIAZIDE. [Concomitant]
     Active Substance: HYDROCHLOROTHIAZIDE
     Indication: CARDIAC DISORDER
     Dosage: UNK

REACTIONS (12)
  - Heart rate irregular [Unknown]
  - Malaise [Unknown]
  - Fall [Unknown]
  - Injection site pain [Unknown]
  - Contusion [Unknown]
  - Anxiety [Unknown]
  - Fatigue [Unknown]
  - Blood potassium decreased [Unknown]
  - Inappropriate schedule of product administration [Unknown]
  - Blood magnesium decreased [Unknown]
  - Blood pressure increased [Unknown]
  - Blood pressure systolic increased [Unknown]
